FAERS Safety Report 11485991 (Version 3)
Quarter: 2016Q4

REPORT INFORMATION
  Report Type: Spontaneous
  Country: FR (occurrence: FR)
  Receive Date: 20150909
  Receipt Date: 20161130
  Transmission Date: 20170206
  Serious: Yes (Hospitalization)
  Sender: FDA-Public Use
  Company Number: FR-PFIZER INC-2015296056

PATIENT
  Age: 42 Year
  Sex: Female

DRUGS (4)
  1. CELEBREX [Suspect]
     Active Substance: CELECOXIB
     Indication: ARTHRALGIA
     Dosage: STRENGTH 200 MG
     Route: 048
     Dates: start: 20150728
  2. CORTANCYL [Concomitant]
     Active Substance: PREDNISONE
     Dosage: 4 MG, DAILY
  3. IMETH [Concomitant]
     Active Substance: METHOTREXATE SODIUM
     Dosage: 5 MG, WEEKLY
  4. KETOPROFEN. [Concomitant]
     Active Substance: KETOPROFEN
     Dosage: OCCASIONAL INTAKE

REACTIONS (1)
  - Acute generalised exanthematous pustulosis [Recovered/Resolved]

NARRATIVE: CASE EVENT DATE: 20150729
